FAERS Safety Report 19686396 (Version 6)
Quarter: 2021Q4

REPORT INFORMATION
  Report Type: Report from Study
  Country: US (occurrence: US)
  Receive Date: 20210811
  Receipt Date: 20211109
  Transmission Date: 20220303
  Serious: Yes (Hospitalization)
  Sender: FDA-Public Use
  Company Number: US-ABBVIE-21K-163-4033362-00

PATIENT
  Age: 19 Year
  Sex: Female
  Weight: 85 kg

DRUGS (3)
  1. HUMIRA [Suspect]
     Active Substance: ADALIMUMAB
     Indication: Crohn^s disease
     Route: 058
     Dates: start: 20170710
  2. VITAMIN D [Concomitant]
     Active Substance: VITAMIN D NOS
     Indication: Prophylaxis
     Route: 048
     Dates: start: 20210809
  3. VITAMINS [Concomitant]
     Active Substance: VITAMINS
     Indication: Prophylaxis
     Route: 048
     Dates: start: 20190102

REACTIONS (2)
  - Cyclic vomiting syndrome [Recovered/Resolved]
  - Cyclic vomiting syndrome [Recovered/Resolved]

NARRATIVE: CASE EVENT DATE: 20210806
